FAERS Safety Report 9366572 (Version 2)
Quarter: 2013Q3

REPORT INFORMATION
  Report Type: Spontaneous
  Country: GR (occurrence: None)
  Receive Date: 20130620
  Receipt Date: 20130729
  Transmission Date: 20140515
  Serious: Yes (Other)
  Sender: FDA-Public Use
  Company Number: HRA-CDB20130109

PATIENT
  Age: 28 Year
  Sex: Female

DRUGS (2)
  1. ELLAONE [Suspect]
     Indication: POST COITAL CONTRACEPTION
     Dosage: 1 IN 1 D
     Route: 048
     Dates: start: 20130606, end: 20130606
  2. SPIRULINA SPP [Concomitant]

REACTIONS (4)
  - Rash [None]
  - Erythema [None]
  - Scratch [None]
  - Burning sensation [None]
